FAERS Safety Report 4615272-8 (Version None)
Quarter: 2005Q1

REPORT INFORMATION
  Report Type: 
  Country: None (occurrence: None)
  Receive Date: 20050317
  Receipt Date: 20050308
  Transmission Date: 20050727
  Serious: Yes (Life-Threatening, Hospitalization, Other)
  Sender: FDA-Public Use
  Company Number: 2005-02-0185

PATIENT
  Age: 24 Year
  Sex: Female
  Weight: 70 kg

DRUGS (3)
  1. TEMODAL [Suspect]
     Indication: ASTROCYTOMA
     Dosage: 340 MG QD ORAL
     Route: 048
     Dates: start: 20050111, end: 20050115
  2. PANTOPRAZOLE SODIUM [Concomitant]
  3. VM-26 [Concomitant]

REACTIONS (5)
  - BRAIN OEDEMA [None]
  - PETECHIAE [None]
  - SEPSIS [None]
  - SUBDURAL HAEMATOMA [None]
  - THROMBOCYTOPENIA [None]
